FAERS Safety Report 9261511 (Version 1)
Quarter: 2013Q2

REPORT INFORMATION
  Report Type: Spontaneous
  Country: US (occurrence: US)
  Receive Date: 20130429
  Receipt Date: 20130429
  Transmission Date: 20140414
  Serious: Yes (Death, Congenital Anomaly, Other)
  Sender: FDA-Public Use
  Company Number: US-PFIZER INC-2013129626

PATIENT
  Sex: Male

DRUGS (8)
  1. ZOLOFT [Suspect]
     Dosage: UNK
     Route: 064
     Dates: start: 200501, end: 2006
  2. SOLU-MEDROL [Concomitant]
     Dosage: UNK
     Route: 064
  3. SINGULAIR [Concomitant]
     Dosage: UNK
     Route: 064
  4. ADVAIR [Concomitant]
     Dosage: UNK
     Route: 064
  5. REGLAN [Concomitant]
     Dosage: UNK
     Route: 064
  6. ZANTAC [Concomitant]
     Dosage: UNK
     Route: 064
  7. ZOFRAN [Concomitant]
     Dosage: UNK
     Route: 064
  8. VITAMIN B6 [Concomitant]
     Dosage: UNK
     Route: 064

REACTIONS (8)
  - Foetal exposure during pregnancy [Fatal]
  - Fallot^s tetralogy [Fatal]
  - Anal atresia [Fatal]
  - Talipes [Fatal]
  - Congenital hand malformation [Fatal]
  - Ventricular septal defect [Fatal]
  - Pulmonary artery stenosis congenital [Fatal]
  - Premature baby [Unknown]
